FAERS Safety Report 8874119 (Version 2)
Quarter: 2012Q4

REPORT INFORMATION
  Report Type: 
  Country: PL (occurrence: PL)
  Receive Date: 20121023
  Receipt Date: 20121109
  Transmission Date: 20130627
  Serious: Yes (Other)
  Sender: FDA-Public Use
  Company Number: PL-ROCHE-1148121

PATIENT
  Sex: Male

DRUGS (1)
  1. OMALIZUMAB [Suspect]
     Indication: ASTHMA
     Route: 064

REACTIONS (4)
  - Asthma [Unknown]
  - Intrauterine infection [Unknown]
  - Respiratory syncytial virus infection [Unknown]
  - Maternal exposure during pregnancy [Unknown]
